FAERS Safety Report 15413912 (Version 2)
Quarter: 2018Q3

REPORT INFORMATION
  Report Type: Spontaneous
  Country: JP (occurrence: JP)
  Receive Date: 20180921
  Receipt Date: 20180927
  Transmission Date: 20181010
  Serious: Yes (Hospitalization, Other)
  Sender: FDA-Public Use
  Company Number: JP-SA-2018SA248922

PATIENT
  Age: 64 Year
  Sex: Female

DRUGS (4)
  1. FLUOROURACIL. [Suspect]
     Active Substance: FLUOROURACIL
     Indication: INVASIVE DUCTAL BREAST CARCINOMA
     Route: 065
  2. EPIRUBICIN [Suspect]
     Active Substance: EPIRUBICIN
     Indication: INVASIVE DUCTAL BREAST CARCINOMA
     Route: 065
  3. CYCLOPHOSPHAMIDE. [Suspect]
     Active Substance: CYCLOPHOSPHAMIDE
     Indication: INVASIVE DUCTAL BREAST CARCINOMA
     Route: 065
  4. DOCETAXEL. [Suspect]
     Active Substance: DOCETAXEL
     Indication: INVASIVE DUCTAL BREAST CARCINOMA
     Route: 065

REACTIONS (8)
  - Anaemia [Recovering/Resolving]
  - Pyrexia [Unknown]
  - Bone marrow failure [Unknown]
  - Malaise [Recovering/Resolving]
  - Hypoalbuminaemia [Recovering/Resolving]
  - Febrile neutropenia [Unknown]
  - Lymphocyte count decreased [Unknown]
  - Pneumocystis jirovecii pneumonia [Unknown]
